FAERS Safety Report 4998607-6 (Version None)
Quarter: 2006Q2

REPORT INFORMATION
  Report Type: 
  Country: None (occurrence: None)
  Receive Date: 20060508
  Receipt Date: 20060420
  Transmission Date: 20061013
  Serious: Yes (Death, Hospitalization)
  Sender: FDA-Public Use
  Company Number: DSA_28111_2006

PATIENT
  Age: 87 Year
  Sex: Female

DRUGS (7)
  1. DILTIAZEM HCL [Suspect]
     Indication: HYPERTENSION
     Dosage: 100 MG Q DAY PO
     Route: 048
     Dates: start: 20050928, end: 20051004
  2. ADALAT [Concomitant]
  3. EVISTA [Concomitant]
  4. ALDOMET [Concomitant]
  5. HALFDIGOXIN [Concomitant]
  6. LANDEL [Concomitant]
  7. NOVOLIN R [Concomitant]

REACTIONS (5)
  - CONDITION AGGRAVATED [None]
  - DIABETIC COMPLICATION [None]
  - HYPERTENSIVE NEPHROPATHY [None]
  - RENAL FAILURE [None]
  - URINE OUTPUT DECREASED [None]
